FAERS Safety Report 5751645-8 (Version None)
Quarter: 2008Q2

REPORT INFORMATION
  Report Type: 
  Country: None (occurrence: None)
  Receive Date: 20080528
  Receipt Date: 20080520
  Transmission Date: 20081010
  Serious: Yes (Other)
  Sender: FDA-Public Use
  Company Number: PHRM2008FR01468

PATIENT

DRUGS (4)
  1. ZOMETA [Suspect]
     Indication: METASTASES TO BONE
     Dosage: 4 MG, QMO
     Route: 042
     Dates: start: 20071229, end: 20080423
  2. BONIVA [Suspect]
     Dates: start: 20070101
  3. LEVOTHYROXINE SODIUM [Concomitant]
  4. ASPIRIN [Concomitant]

REACTIONS (5)
  - CARBOHYDRATE ANTIGEN 15-3 INCREASED [None]
  - COUGH [None]
  - DYSPNOEA [None]
  - LYMPHANGITIS [None]
  - PERICARDITIS [None]
